FAERS Safety Report 25775401 (Version 1)
Quarter: 2025Q3

REPORT INFORMATION
  Report Type: Spontaneous
  Country: US (occurrence: US)
  Receive Date: 20250909
  Receipt Date: 20250909
  Transmission Date: 20251021
  Serious: No
  Sender: CIPLA
  Company Number: US-CIPLA LTD.-2024US14808

PATIENT

DRUGS (3)
  1. DICLOFENAC [Suspect]
     Active Substance: DICLOFENAC
     Indication: Arthritis
     Dosage: UNK, QID (4 TIMES A DAY) (LONG TIME AGO FOR YEARS)
     Route: 061
  2. DICLOFENAC [Suspect]
     Active Substance: DICLOFENAC
     Dosage: UNK, QID (4 TIMES A DAY)
     Route: 061
  3. DICLOFENAC [Suspect]
     Active Substance: DICLOFENAC
     Route: 061

REACTIONS (5)
  - Product administered at inappropriate site [Unknown]
  - Product dose omission issue [Unknown]
  - Off label use [Unknown]
  - Product use issue [Unknown]
  - Product outer packaging issue [Unknown]
